FAERS Safety Report 9760234 (Version 1)
Quarter: 2013Q4

REPORT INFORMATION
  Report Type: Spontaneous
  Country: US (occurrence: US)
  Receive Date: 20131216
  Receipt Date: 20131216
  Transmission Date: 20140711
  Serious: Yes (Hospitalization)
  Sender: FDA-Public Use
  Company Number: US-GILEAD-2010-0028378

PATIENT
  Age: 60 Year
  Sex: Female
  Weight: 61.4 kg

DRUGS (4)
  1. LETAIRIS [Suspect]
     Indication: PULMONARY ARTERIAL HYPERTENSION
     Route: 048
     Dates: start: 20090126
  2. LASIX [Concomitant]
  3. NORVASC [Concomitant]
  4. CALCIUM + VIT D [Concomitant]

REACTIONS (1)
  - Fluid retention [Recovered/Resolved]
